FAERS Safety Report 8227379-7 (Version None)
Quarter: 2012Q1

REPORT INFORMATION
  Report Type: 
  Country: None (occurrence: None)
  Receive Date: 20120322
  Receipt Date: 20120308
  Transmission Date: 20120608
  Serious: Yes (Hospitalization)
  Sender: FDA-Public Use
  Company Number: FR-AMGEN-FRASP2012017161

PATIENT
  Age: 73 Year
  Sex: Female

DRUGS (9)
  1. VALSARTAN  AND HYDROCHLOROTHIAZIDE [Concomitant]
     Dosage: UNK
  2. OROCAL VITAMIN D [Concomitant]
     Dosage: UNK
  3. PANTOPRAZOLE SODIUM [Concomitant]
     Dosage: UNK
  4. KETOPROFEN [Suspect]
     Dosage: 150 MG, 2X/WEEK
     Route: 058
  5. PROPOXYPHENE HCL AND ACETAMINOPHEN [Concomitant]
     Dosage: UNK
  6. ENBREL [Suspect]
     Indication: RHEUMATOID ARTHRITIS
     Dosage: UNK
     Route: 058
     Dates: start: 20060101, end: 20091201
  7. FELODIPINE [Concomitant]
     Dosage: UNK
  8. HUMIRA [Suspect]
     Indication: RHEUMATOID ARTHRITIS
     Dosage: 40 MG, ONE IN 2 WEEKS
     Route: 058
     Dates: start: 20091226, end: 20100501
  9. ACETAMINOPHEN [Concomitant]
     Dosage: UNK

REACTIONS (3)
  - EPIDURITIS [None]
  - SEPTIC SHOCK [None]
  - INTERVERTEBRAL DISCITIS [None]
